FAERS Safety Report 26005622 (Version 1)
Quarter: 2025Q4

REPORT INFORMATION
  Report Type: Spontaneous
  Country: US (occurrence: US)
  Receive Date: 20251106
  Receipt Date: 20251106
  Transmission Date: 20260118
  Serious: No
  Sender: TEVA
  Company Number: US-TEVA-VS-3174099

PATIENT
  Age: 67 Year
  Sex: Female

DRUGS (9)
  1. ADDERALL [Suspect]
     Active Substance: AMPHETAMINE ASPARTATE\AMPHETAMINE SULFATE\DEXTROAMPHETAMINE SACCHARATE\DEXTROAMPHETAMINE SULFATE
     Indication: Attention deficit hyperactivity disorder
     Route: 065
     Dates: start: 20161019
  2. ADDERALL [Suspect]
     Active Substance: AMPHETAMINE ASPARTATE\AMPHETAMINE SULFATE\DEXTROAMPHETAMINE SACCHARATE\DEXTROAMPHETAMINE SULFATE
     Indication: Attention deficit hyperactivity disorder
     Route: 065
  3. XYREM [Suspect]
     Active Substance: SODIUM OXYBATE
     Indication: Narcolepsy
     Route: 048
  4. WELLBUTRIN XL [Concomitant]
     Active Substance: BUPROPION HYDROCHLORIDE
     Indication: Product used for unknown indication
     Route: 065
     Dates: start: 20171001
  5. VERAPAMIL EG [Concomitant]
     Indication: Product used for unknown indication
     Route: 065
     Dates: start: 20180604
  6. RIZATRIPTAN [Concomitant]
     Active Substance: RIZATRIPTAN
     Indication: Product used for unknown indication
     Route: 065
     Dates: start: 20180514
  7. BUPROPION HYDROCHLORIDE [Concomitant]
     Active Substance: BUPROPION HYDROCHLORIDE
     Indication: Product used for unknown indication
     Route: 065
  8. CLONAZEPAM [Concomitant]
     Active Substance: CLONAZEPAM
     Indication: Product used for unknown indication
     Route: 065
  9. AMPHETAMINE [Concomitant]
     Active Substance: AMPHETAMINE
     Indication: Product used for unknown indication
     Route: 065

REACTIONS (7)
  - Palpitations [Unknown]
  - Drug ineffective [Unknown]
  - Loss of personal independence in daily activities [Unknown]
  - Balance disorder [Unknown]
  - Product administration interrupted [Unknown]
  - Product dose omission issue [Unknown]
  - Depressed mood [Unknown]

NARRATIVE: CASE EVENT DATE: 20250101
